FAERS Safety Report 9657850 (Version 1)
Quarter: 2013Q4

REPORT INFORMATION
  Report Type: Spontaneous
  Country: US (occurrence: US)
  Receive Date: 20131030
  Receipt Date: 20131030
  Transmission Date: 20140711
  Serious: No
  Sender: FDA-Public Use
  Company Number: US-ENDO PHARMACEUTICALS INC.-HCDA20130062

PATIENT
  Age: 56 Year
  Sex: Male
  Weight: 71.73 kg

DRUGS (1)
  1. HYDROCODONE/ACETAMINOPHEN 10MG/500MG [Suspect]
     Indication: RHEUMATOID ARTHRITIS
     Dosage: 30/1500 MG
     Dates: start: 2005, end: 20130205

REACTIONS (1)
  - Multi-organ disorder [Not Recovered/Not Resolved]
